FAERS Safety Report 5726292-4 (Version None)
Quarter: 2008Q2

REPORT INFORMATION
  Report Type: 
  Country: None (occurrence: None)
  Receive Date: 20080502
  Receipt Date: 20080424
  Transmission Date: 20081010
  Serious: Yes (Hospitalization)
  Sender: FDA-Public Use
  Company Number: US-AMGEN-US276195

PATIENT
  Sex: Female

DRUGS (9)
  1. VECTIBIX [Suspect]
     Route: 042
     Dates: start: 20080327, end: 20080410
  2. LOVENOX [Concomitant]
     Route: 058
  3. HYDROCHLOROTHIAZIDE [Concomitant]
  4. TOPROL-XL [Concomitant]
  5. ASPIRIN [Concomitant]
  6. POTASSIUM CHLORIDE [Concomitant]
  7. MAGNESIUM OXIDE [Concomitant]
  8. COMBIVENT [Concomitant]
  9. VITAMIN CAP [Concomitant]

REACTIONS (1)
  - DYSPNOEA EXERTIONAL [None]
